FAERS Safety Report 15416568 (Version 2)
Quarter: 2018Q3

REPORT INFORMATION
  Report Type: Spontaneous
  Country: JP (occurrence: JP)
  Receive Date: 20180924
  Receipt Date: 20180928
  Transmission Date: 20181010
  Serious: Yes (Hospitalization, Other)
  Sender: FDA-Public Use
  Company Number: JP-ABBVIE-18K-087-2494642-00

PATIENT
  Age: 39 Year
  Sex: Female
  Weight: 41 kg

DRUGS (6)
  1. LACTIC ACID. [Concomitant]
     Active Substance: LACTIC ACID
     Indication: COLITIS ULCERATIVE
     Route: 048
     Dates: start: 20161125
  2. LIALDA [Concomitant]
     Active Substance: MESALAMINE
     Indication: COLITIS ULCERATIVE
     Route: 048
     Dates: start: 20171002
  3. PENTASA [Concomitant]
     Active Substance: MESALAMINE
     Indication: COLITIS ULCERATIVE
     Route: 054
     Dates: start: 20160801
  4. ATORVASTATIN CALCIUM HYDRATE [Concomitant]
     Active Substance: ATORVASTATIN CALCIUM
     Indication: DYSLIPIDAEMIA
     Route: 048
     Dates: start: 20151218
  5. POTASSIUM L ASPARTATE [Concomitant]
     Indication: HYPOKALAEMIA
     Route: 048
     Dates: start: 20170512
  6. HUMIRA [Suspect]
     Active Substance: ADALIMUMAB
     Indication: COLITIS ULCERATIVE
     Route: 058
     Dates: start: 20171007

REACTIONS (4)
  - Endometrial thickening [Unknown]
  - Exposure during pregnancy [Unknown]
  - Selective abortion [Unknown]
  - Post abortion haemorrhage [Unknown]

NARRATIVE: CASE EVENT DATE: 2018
